FAERS Safety Report 9266283 (Version 1)
Quarter: 2013Q2

REPORT INFORMATION
  Report Type: Spontaneous
  Country: CA (occurrence: CA)
  Receive Date: 20130502
  Receipt Date: 20130502
  Transmission Date: 20140414
  Serious: Yes (Hospitalization)
  Sender: FDA-Public Use
  Company Number: CA-ABBOTT-13P-028-1081000-00

PATIENT
  Age: 33 Year
  Sex: Male
  Weight: 92 kg

DRUGS (11)
  1. NORVIR [Suspect]
     Indication: PRODUCT USED FOR UNKNOWN INDICATION
     Route: 048
  2. KIVEXA [Suspect]
     Indication: PRODUCT USED FOR UNKNOWN INDICATION
     Route: 048
  3. KIVEXA [Suspect]
     Route: 048
  4. PREZISTA [Suspect]
     Indication: PRODUCT USED FOR UNKNOWN INDICATION
     Route: 048
  5. PREZISTA [Suspect]
     Route: 048
  6. ACYCLOVIR [Concomitant]
     Indication: PRODUCT USED FOR UNKNOWN INDICATION
  7. CIPRALEX [Concomitant]
     Indication: PRODUCT USED FOR UNKNOWN INDICATION
  8. SYMBICORT [Concomitant]
     Indication: PRODUCT USED FOR UNKNOWN INDICATION
     Dosage: POWDER
  9. VENTOLIN [Concomitant]
     Indication: PRODUCT USED FOR UNKNOWN INDICATION
  10. VIAGRA [Concomitant]
     Indication: PRODUCT USED FOR UNKNOWN INDICATION
  11. WELLBUTRIN XL [Concomitant]
     Indication: PRODUCT USED FOR UNKNOWN INDICATION

REACTIONS (6)
  - Suicide attempt [Recovering/Resolving]
  - Blood bilirubin increased [Recovering/Resolving]
  - Liver function test abnormal [Recovering/Resolving]
  - Overdose [Recovering/Resolving]
  - Nausea [Recovering/Resolving]
  - Vomiting [Recovering/Resolving]
